FAERS Safety Report 16575183 (Version 1)
Quarter: 2019Q3

REPORT INFORMATION
  Report Type: Spontaneous
  Country: FR (occurrence: FR)
  Receive Date: 20190715
  Receipt Date: 20190715
  Transmission Date: 20191004
  Serious: Yes (Life-Threatening, Hospitalization)
  Sender: FDA-Public Use
  Company Number: PHHY2019FR162376

PATIENT
  Age: 54 Year
  Sex: Female

DRUGS (1)
  1. ACLASTA [Suspect]
     Active Substance: ZOLEDRONIC ACID
     Indication: SPINAL FRACTURE
     Dosage: UNK
     Route: 042

REACTIONS (1)
  - Oesophageal rupture [Recovered/Resolved]

NARRATIVE: CASE EVENT DATE: 201509
